FAERS Safety Report 23666437 (Version 1)
Quarter: 2024Q1

REPORT INFORMATION
  Report Type: Spontaneous
  Country: US (occurrence: US)
  Receive Date: 20240324
  Receipt Date: 20240324
  Transmission Date: 20240410
  Serious: No
  Sender: FDA-Public Use
  Company Number: US-TEVA-VS-3140828

PATIENT
  Age: 60 Year

DRUGS (1)
  1. METRONIDAZOLE [Suspect]
     Active Substance: METRONIDAZOLE
     Indication: Colitis
     Route: 048

REACTIONS (3)
  - Dysphagia [Unknown]
  - Dysgeusia [Unknown]
  - Nausea [Unknown]
